FAERS Safety Report 18603143 (Version 1)
Quarter: 2020Q4

REPORT INFORMATION
  Report Type: Spontaneous
  Country: US (occurrence: US)
  Receive Date: 20201210
  Receipt Date: 20201210
  Transmission Date: 20210114
  Serious: No
  Sender: FDA-Public Use
  Company Number: US-PURDUE-USA-2020-0150190

PATIENT
  Sex: Female
  Weight: 82.99 kg

DRUGS (4)
  1. GEMZAR [Concomitant]
     Active Substance: GEMCITABINE HYDROCHLORIDE
     Indication: BREAST CANCER
     Dosage: UNK, UNK
     Route: 065
  2. DILAUDID [Suspect]
     Active Substance: HYDROMORPHONE HYDROCHLORIDE
     Indication: CANCER PAIN
     Dosage: 4 MG, Q3H PRN
     Route: 048
  3. FENTANYL                           /00174602/ [Suspect]
     Active Substance: FENTANYL
     Indication: CANCER PAIN
     Dosage: UNK, UNK
     Route: 062
  4. TAXOTERE [Concomitant]
     Active Substance: DOCETAXEL
     Indication: BREAST CANCER
     Dosage: UNK UNK, UNK
     Route: 065

REACTIONS (2)
  - Aphasia [Unknown]
  - Dysphonia [Unknown]
